FAERS Safety Report 16878752 (Version 2)
Quarter: 2019Q4

REPORT INFORMATION
  Report Type: Spontaneous
  Country: US (occurrence: US)
  Receive Date: 20191002
  Receipt Date: 20191206
  Transmission Date: 20200122
  Serious: Yes (Life-Threatening, Hospitalization, Disabling, Other)
  Sender: FDA-Public Use
  Company Number: US-SA-2019SA270516

PATIENT
  Age: 77 Year
  Sex: Male

DRUGS (6)
  1. ELIQUIS [Suspect]
     Active Substance: APIXABAN
     Indication: CAROTID ARTERY STENOSIS
  2. ELIQUIS [Suspect]
     Active Substance: APIXABAN
     Indication: ATRIAL FIBRILLATION
  3. PLAVIX [Suspect]
     Active Substance: CLOPIDOGREL BISULFATE
     Indication: CORONARY ARTERY DISEASE
     Dosage: 75 MG, QD
     Route: 048
     Dates: start: 20160705, end: 20181215
  4. PLAVIX [Suspect]
     Active Substance: CLOPIDOGREL BISULFATE
     Indication: ATRIAL FIBRILLATION
  5. ELIQUIS [Suspect]
     Active Substance: APIXABAN
     Indication: CORONARY ARTERY DISEASE
     Dosage: 5 MG, BID
     Route: 048
     Dates: start: 20180420, end: 20181215
  6. PLAVIX [Suspect]
     Active Substance: CLOPIDOGREL BISULFATE
     Indication: CAROTID ARTERY STENOSIS

REACTIONS (13)
  - Memory impairment [Recovered/Resolved with Sequelae]
  - Carotid artery stenosis [Unknown]
  - Facial paralysis [Recovered/Resolved with Sequelae]
  - Hemiparesis [Recovered/Resolved with Sequelae]
  - Anaemia [Unknown]
  - Laryngeal haemorrhage [Recovered/Resolved]
  - Respiratory tract haemorrhage [Recovered/Resolved]
  - Haemoptysis [Recovered/Resolved]
  - Cerebrovascular accident [Recovered/Resolved with Sequelae]
  - Cerebrovascular accident [Recovered/Resolved with Sequelae]
  - Mobility decreased [Recovered/Resolved with Sequelae]
  - Speech disorder [Recovered/Resolved with Sequelae]
  - Melaena [Unknown]

NARRATIVE: CASE EVENT DATE: 20181215
